FAERS Safety Report 8739106 (Version 2)
Quarter: 2012Q4

REPORT INFORMATION
  Report Type: 
  Country: US (occurrence: US)
  Receive Date: 20120823
  Receipt Date: 20120926
  Transmission Date: 20130627
  Serious: Yes (Other)
  Sender: FDA-Public Use
  Company Number: US-PFIZER INC-2012205476

PATIENT
  Age: 55 Year
  Sex: Male
  Weight: 78.01 kg

DRUGS (9)
  1. CHANTIX [Suspect]
     Indication: SMOKING CESSATION THERAPY
     Dosage: 0.5 mg, 1x/day
     Route: 048
     Dates: start: 201206, end: 2012
  2. CHANTIX [Suspect]
     Dosage: 1 mg, 2x/day
     Route: 048
     Dates: start: 2012, end: 20120820
  3. TOFRANIL [Concomitant]
     Dosage: UNK
     Dates: start: 201208
  4. DAYPRO [Concomitant]
     Indication: DIABETIC NEUROPATHY
     Dosage: UNK
  5. MEVACOR [Concomitant]
     Dosage: UNK
  6. TRILEPTAL [Concomitant]
     Dosage: UNK
  7. LAMICTAL [Concomitant]
     Dosage: UNK
  8. NEURONTIN [Concomitant]
     Indication: DIABETIC NEUROPATHY
     Dosage: UNK
  9. METHADONE [Concomitant]
     Indication: PAIN
     Dosage: UNK

REACTIONS (4)
  - Syncope [Unknown]
  - Dizziness [Unknown]
  - Feeling hot [Unknown]
  - Paraesthesia [Unknown]
